FAERS Safety Report 19956401 (Version 1)
Quarter: 2021Q4

REPORT INFORMATION
  Report Type: Spontaneous
  Country: US (occurrence: US)
  Receive Date: 20211014
  Receipt Date: 20211014
  Transmission Date: 20220303
  Serious: Yes (Death)
  Sender: FDA-Public Use
  Company Number: US-ROCHE-2931069

PATIENT
  Age: 81 Year
  Sex: Female
  Weight: 73 kg

DRUGS (7)
  1. TOCILIZUMAB [Suspect]
     Active Substance: TOCILIZUMAB
     Indication: COVID-19
     Route: 042
     Dates: start: 20210920, end: 20210920
  2. TOCILIZUMAB [Suspect]
     Active Substance: TOCILIZUMAB
     Dosage: FREQUENCY : ONCE
     Route: 042
     Dates: start: 20210920, end: 20210920
  3. DEXAMETHASONE [Concomitant]
     Active Substance: DEXAMETHASONE
     Dates: start: 20210920, end: 20210920
  4. DEXAMETHASONE [Concomitant]
     Active Substance: DEXAMETHASONE
     Dates: start: 20210924, end: 20210930
  5. AZITHROMYCIN ANHYDROUS [Concomitant]
     Active Substance: AZITHROMYCIN ANHYDROUS
     Dates: start: 20210922
  6. ROCEPHIN [Concomitant]
     Active Substance: CEFTRIAXONE SODIUM
     Dates: start: 20210922
  7. CEFAZOLIN [Concomitant]
     Active Substance: CEFAZOLIN

REACTIONS (9)
  - Stomal hernia [Fatal]
  - Abdominal hernia [Fatal]
  - Leukocytosis [Fatal]
  - Staphylococcal infection [Fatal]
  - Hypoxia [Fatal]
  - COVID-19 pneumonia [Fatal]
  - Bronchial secretion retention [Fatal]
  - Hypotension [Fatal]
  - Off label use [Unknown]

NARRATIVE: CASE EVENT DATE: 20210920
